FAERS Safety Report 8648499 (Version 2)
Quarter: 2014Q1

REPORT INFORMATION
  Report Type: Spontaneous
  Country: US (occurrence: None)
  Receive Date: 20120323
  Receipt Date: 20130305
  Transmission Date: 20141002
  Serious: Yes (Disabling)
  Sender: FDA-Public Use
  Company Number: 163-21880-11082902

PATIENT
  Age: 72 Year
  Sex: Female

DRUGS (1)
  1. REVLIMID [Suspect]
     Indication: PLASMA CELL MYELOMA
     Dosage: 25 MG, DAYS 1-21 Q28 DAYS, PO
     Route: 048
     Dates: start: 201002

REACTIONS (3)
  - Plasma cell myeloma [None]
  - Neoplasm progression [None]
  - Blood immunoglobulin G increased [None]
